FAERS Safety Report 4412284-4 (Version None)
Quarter: 2004Q3

REPORT INFORMATION
  Report Type: 
  Country: None (occurrence: None)
  Receive Date: 20040727
  Receipt Date: 20040712
  Transmission Date: 20050211
  Serious: Yes (Hospitalization, Other)
  Sender: FDA-Public Use
  Company Number: US-JNJFOC-20040502834

PATIENT
  Age: 66 Year
  Sex: Female

DRUGS (25)
  1. DURAGESIC [Suspect]
     Indication: PAIN
     Dosage: SEE IMAGE
     Route: 062
     Dates: start: 20040401
  2. DURAGESIC [Suspect]
     Indication: PAIN
     Dosage: SEE IMAGE
     Route: 062
     Dates: start: 20040421
  3. .... [Suspect]
     Dosage: 100 UG/HR, 1 IN 72 HOUR, TRANSDERMAL
     Route: 062
  4. ... [Suspect]
     Dosage: 150 UG/HR, 1 IN 72 HOUR, TRANSDERMAL
     Route: 062
     Dates: start: 20040421
  5. ... [Suspect]
     Dosage: 100 UG/HR, 1 IN 72 HOUR, TRANSDERMAL
     Route: 062
     Dates: start: 20040401
  6. RESTORIL (TEMAZEPAM) TABLETS [Concomitant]
  7. COMBI-PATCH (KLIOGEST ^NOVO INDUSTRI^) PATCH [Concomitant]
  8. ZOFRAN (ONDANSETRON HYDROCHLORIDE) TABLETS [Concomitant]
  9. PHENERGAN (PROMETHAZINE HYDROCHLORIDE) TABLETS [Concomitant]
  10. ATIVAN [Concomitant]
  11. ZOMITA (ZOLEDRONIC ACID) INJECTION [Concomitant]
  12. KYTRIL (GRANISETRON) INJECTION [Concomitant]
  13. VELCADE/ BORTEZOMIB (ALL OTHER THERAPEUTIC PRODUCTS) INJECTION [Concomitant]
  14. PERCOCET (OXYCOCET) TABLETS [Concomitant]
  15. ATENOLOL [Concomitant]
  16. LASIX [Concomitant]
  17. VOLTAREN (DICLOFENAC SODIUM) TABLETS [Concomitant]
  18. PAXIL [Concomitant]
  19. OSCAL (CALCIUM CARBONATE) TABLETS [Concomitant]
  20. FLONASE (FLUTICASONE PROPIONATE) SPRAY [Concomitant]
  21. CLARINEX [Concomitant]
  22. ROBAXIN (METHOCARBAMOL) TABLETS [Concomitant]
  23. KLORCON (POTASSIUM CHLORIDE) TABLETS [Concomitant]
  24. BENADRYL [Concomitant]
  25. MORPHINE [Concomitant]

REACTIONS (4)
  - COMA [None]
  - INADEQUATE ANALGESIA [None]
  - NAUSEA [None]
  - PHARMACEUTICAL PRODUCT COMPLAINT [None]
